FAERS Safety Report 15561587 (Version 1)
Quarter: 2018Q4

REPORT INFORMATION
  Report Type: Spontaneous
  Country: US (occurrence: US)
  Receive Date: 20181029
  Receipt Date: 20181029
  Transmission Date: 20190205
  Serious: No
  Sender: FDA-Public Use
  Company Number: US-GLAXOSMITHKLINE-US2018190221

PATIENT
  Sex: Male

DRUGS (1)
  1. ANORO ELLIPTA [Suspect]
     Active Substance: UMECLIDINIUM BROMIDE\VILANTEROL TRIFENATATE
     Indication: BRONCHITIS
     Dosage: UNK UNK, U
     Route: 055
     Dates: start: 20181003

REACTIONS (5)
  - Candida infection [Unknown]
  - Oral pain [Unknown]
  - Off label use [Unknown]
  - Product use in unapproved indication [Unknown]
  - Glossodynia [Unknown]

NARRATIVE: CASE EVENT DATE: 20181003
